FAERS Safety Report 10671869 (Version 2)
Quarter: 2014Q4

REPORT INFORMATION
  Report Type: Report from Study
  Country: GB (occurrence: GB)
  Receive Date: 20141223
  Receipt Date: 20141223
  Transmission Date: 20150529
  Serious: Yes (Hospitalization)
  Sender: FDA-Public Use
  Company Number: GB-MERCK-1412GBR000866

PATIENT
  Age: 62 Year
  Sex: Male

DRUGS (4)
  1. CYCLOPHOSPHAMIDE. [Suspect]
     Active Substance: CYCLOPHOSPHAMIDE
  2. DEXAMETHASONE. [Suspect]
     Active Substance: DEXAMETHASONE
  3. PRE TRIAL THERAPY [Suspect]
     Active Substance: UNSPECIFIED INGREDIENT
     Dosage: UNK
  4. VORINOSTAT [Suspect]
     Active Substance: VORINOSTAT

REACTIONS (1)
  - Respiratory syncytial virus test positive [Recovered/Resolved]

NARRATIVE: CASE EVENT DATE: 20131227
